FAERS Safety Report 6790390-7 (Version None)
Quarter: 2010Q2

REPORT INFORMATION
  Report Type: 
  Country: None (occurrence: None)
  Receive Date: 20100624
  Receipt Date: 20100614
  Transmission Date: 20101027
  Serious: Yes (Hospitalization, Other)
  Sender: FDA-Public Use
  Company Number: PHHY2010DE29558

PATIENT
  Age: 89 Year
  Sex: Female
  Weight: 70 kg

DRUGS (9)
  1. RASILEZ [Suspect]
     Indication: HYPERTENSION
     Dosage: 300 MG, QD
     Route: 048
     Dates: start: 20100223, end: 20100320
  2. EXFORGE HCT [Suspect]
     Indication: HYPERTENSION
     Dosage: 160/10/12.5 MG
     Route: 048
     Dates: start: 20100223
  3. DIGITOXIN [Suspect]
     Indication: TACHYARRHYTHMIA
     Dosage: 0.07 UG, UNK
     Route: 048
     Dates: start: 20090821, end: 20100321
  4. SPIRONOLACTONE [Suspect]
     Indication: HYPERTENSION
     Dosage: 100 MG, ONCE A DAY
     Route: 048
     Dates: start: 20090925, end: 20100320
  5. SPIRONOLACTONE [Suspect]
     Indication: OEDEMA PERIPHERAL
  6. BIKALM [Concomitant]
     Indication: SLEEP DISORDER
     Dosage: 5 MG, QD
     Route: 048
  7. METOHEXAL [Concomitant]
     Indication: HYPERTENSION
     Dosage: 50 MG, QD
     Route: 048
     Dates: end: 20100324
  8. MIRTAZAPINE [Concomitant]
     Indication: DEPRESSION
     Dosage: 15 MG, ONCE DAILY
     Route: 048
     Dates: start: 20090901
  9. PANTOZOL [Concomitant]
     Indication: DYSPEPSIA
     Dosage: 20 MG, ONCE DAILY
     Route: 048

REACTIONS (8)
  - DEHYDRATION [None]
  - DELIRIUM [None]
  - HALLUCINATION [None]
  - HALLUCINATION, AUDITORY [None]
  - HALLUCINATION, VISUAL [None]
  - HYPERKALAEMIA [None]
  - RENAL FAILURE CHRONIC [None]
  - THERAPEUTIC AGENT TOXICITY [None]
